FAERS Safety Report 7213994-6 (Version None)
Quarter: 2011Q1

REPORT INFORMATION
  Report Type: 
  Country: None (occurrence: None)
  Receive Date: 20110106
  Receipt Date: 20101228
  Transmission Date: 20110831
  Serious: Yes (Other)
  Sender: FDA-Public Use
  Company Number: US-BAYER-2010-008776

PATIENT
  Sex: Female
  Weight: 58 kg

DRUGS (4)
  1. IBUPROFEN [Suspect]
     Indication: TOOTHACHE
     Dosage: UNK
     Dates: start: 20101225, end: 20101225
  2. MULTI-VITAMIN [Concomitant]
  3. ALEVE (CAPLET) [Suspect]
     Indication: TOOTHACHE
     Dosage: DAILY DOSE 660 MG
     Route: 048
     Dates: start: 20101226
  4. LOVAZA [Concomitant]

REACTIONS (3)
  - HAEMATOCHEZIA [None]
  - ABDOMINAL DISCOMFORT [None]
  - TOOTHACHE [None]
